FAERS Safety Report 10099810 (Version 1)
Quarter: 2014Q2

REPORT INFORMATION
  Report Type: Spontaneous
  Country: US (occurrence: US)
  Receive Date: 20140423
  Receipt Date: 20140423
  Transmission Date: 20141212
  Serious: No
  Sender: FDA-Public Use
  Company Number: US-GILEAD-2013-0073667

PATIENT
  Sex: Female

DRUGS (4)
  1. LETAIRIS [Suspect]
     Indication: PRODUCT USED FOR UNKNOWN INDICATION
     Dosage: 10 MG, QD
     Dates: start: 20120803
  2. TYVASO [Concomitant]
     Indication: HYPOTENSION
     Dosage: 2 DF, QID
     Route: 055
  3. TYVASO [Concomitant]
     Dosage: 1 DF, QID
     Route: 055
  4. ADCIRCA [Concomitant]
     Indication: PRODUCT USED FOR UNKNOWN INDICATION

REACTIONS (6)
  - Blood pressure diastolic decreased [Recovered/Resolved]
  - Throat irritation [Unknown]
  - Cough [Unknown]
  - Blood pressure increased [Unknown]
  - Headache [Recovered/Resolved]
  - Flushing [Unknown]
